FAERS Safety Report 9342684 (Version 1)
Quarter: 2013Q2

REPORT INFORMATION
  Report Type: Spontaneous
  Country: US (occurrence: None)
  Receive Date: 20130607
  Receipt Date: 20130607
  Transmission Date: 20140414
  Serious: Yes (Hospitalization)
  Sender: FDA-Public Use
  Company Number: E2B_00000896

PATIENT
  Sex: Female
  Weight: 95.26 kg

DRUGS (1)
  1. CEFADROXIL [Suspect]

REACTIONS (4)
  - Breast haemorrhage [None]
  - Lip haemorrhage [None]
  - Ocular hyperaemia [None]
  - Blister [None]
